FAERS Safety Report 5161979-6 (Version None)
Quarter: 2006Q4

REPORT INFORMATION
  Report Type: 
  Country: None (occurrence: None)
  Receive Date: 20061121
  Receipt Date: 20060421
  Transmission Date: 20070319
  Serious: Yes (Death)
  Sender: FDA-Public Use
  Company Number: A03200602557

PATIENT
  Age: 87 Year
  Sex: Male

DRUGS (8)
  1. PLAVIX [Suspect]
     Indication: ANTICOAGULANT THERAPY
     Dosage: 75 MG QD - ORAL
     Route: 048
  2. FUROSEMIDE [Concomitant]
  3. GABAPENTIN [Concomitant]
  4. QUINAPRIL [Concomitant]
  5. LEVOFLOXACIN [Concomitant]
  6. METOCLOPRAMIDE [Concomitant]
  7. METOPROLOL SUCCINATE [Concomitant]
  8. ABACAVIR [Concomitant]

REACTIONS (1)
  - CARDIAC FAILURE [None]
